FAERS Safety Report 4521292-4 (Version None)
Quarter: 2004Q4

REPORT INFORMATION
  Report Type: 
  Country: None (occurrence: None)
  Receive Date: 20041208
  Receipt Date: 20041122
  Transmission Date: 20050328
  Serious: Yes (Death)
  Sender: FDA-Public Use
  Company Number: GXKR2004US00473

PATIENT
  Age: 75 Year
  Sex: Male

DRUGS (5)
  1. DEXAMETHASONE [Suspect]
     Indication: LIVER DISORDER
     Dosage: 8 MG/DAILY
  2. DEXAMETHASONE [Suspect]
     Dosage: 16 MG/DAILY
  3. HYDROMORPHONE [Concomitant]
     Indication: PAIN
     Route: 048
  4. HYDROMORPHONE [Concomitant]
     Route: 051
  5. WARFARIN SODIUM [Concomitant]
     Indication: DEEP VEIN THROMBOSIS

REACTIONS (4)
  - ADRENOCORTICAL INSUFFICIENCY ACUTE [None]
  - CIRCULATORY COLLAPSE [None]
  - COMA [None]
  - MEDICATION ERROR [None]
